FAERS Safety Report 5453651-X (Version None)
Quarter: 2007Q3

REPORT INFORMATION
  Report Type: 
  Country: None (occurrence: None)
  Receive Date: 20070917
  Receipt Date: 20070910
  Transmission Date: 20080115
  Serious: Yes (Other)
  Sender: FDA-Public Use
  Company Number: PHBS2007ES14942

PATIENT
  Age: 68 Year
  Sex: Male

DRUGS (5)
  1. ZOLEDRONIC ACID [Suspect]
     Indication: METASTASES TO BONE
  2. DOCETAXEL [Concomitant]
  3. STRAMUSTINE [Concomitant]
  4. PREDNISONE [Concomitant]
  5. CORTICOSTEROIDS [Concomitant]

REACTIONS (10)
  - BONE DISORDER [None]
  - BREATH ODOUR [None]
  - DYSAESTHESIA [None]
  - GINGIVAL ABSCESS [None]
  - HYPOCALCAEMIA [None]
  - LOOSE TOOTH [None]
  - OSTEONECROSIS [None]
  - TOOTH EXTRACTION [None]
  - TOOTH INFECTION [None]
  - TOOTH LOSS [None]
